FAERS Safety Report 6156946-X (Version None)
Quarter: 2009Q2

REPORT INFORMATION
  Report Type: 
  Country: None (occurrence: None)
  Receive Date: 20090416
  Receipt Date: 20090406
  Transmission Date: 20091009
  Serious: Yes (Death, Life-Threatening, Hospitalization)
  Sender: FDA-Public Use
  Company Number: B0565472A

PATIENT
  Sex: Male
  Weight: 84 kg

DRUGS (9)
  1. ARIXTRA [Suspect]
     Dosage: 7.5MG PER DAY
     Route: 058
     Dates: start: 20081217, end: 20081226
  2. PROZAC [Concomitant]
     Dosage: .5TAB PER DAY
     Route: 048
  3. CORTANCYL [Concomitant]
     Dosage: 5MG PER DAY
     Route: 065
  4. DURAGESIC-100 [Concomitant]
     Dosage: 12UNIT ALTERNATE DAYS
     Route: 065
  5. FORLAX [Concomitant]
     Route: 065
  6. TAMSULOSINE [Concomitant]
     Dosage: .4MG PER DAY
     Route: 065
  7. NOCTRAN [Concomitant]
     Route: 065
  8. OROCAL [Concomitant]
     Route: 065
  9. PARACETAMOL [Concomitant]
     Dosage: 1G THREE TIMES PER DAY
     Route: 065

REACTIONS (4)
  - CARDIAC FAILURE [None]
  - HAEMATOMA [None]
  - HAEMORRHAGIC ANAEMIA [None]
  - HYPOVOLAEMIA [None]
